FAERS Safety Report 8945839 (Version 1)
Quarter: 2012Q4

REPORT INFORMATION
  Report Type: 
  Country: CL (occurrence: CL)
  Receive Date: 20121205
  Receipt Date: 20121205
  Transmission Date: 20130627
  Serious: Yes (Death, Other)
  Sender: FDA-Public Use
  Company Number: PHHY2012CL111453

PATIENT
  Age: 78 Year
  Sex: Female

DRUGS (1)
  1. EXFORGE [Suspect]
     Indication: HYPERTENSION
     Dosage: 1 DF (160mg valsar/10mg amlo), BID
     Route: 048
     Dates: start: 20120327

REACTIONS (2)
  - Death [Fatal]
  - Cerebrovascular accident [Unknown]
